FAERS Safety Report 18441240 (Version 1)
Quarter: 2020Q4

REPORT INFORMATION
  Report Type: Report from Study
  Country: CA (occurrence: CA)
  Receive Date: 20201029
  Receipt Date: 20201029
  Transmission Date: 20210114
  Serious: Yes (Other)
  Sender: FDA-Public Use
  Company Number: CA-JNJFOC-20190620428

PATIENT
  Age: 20 Year
  Sex: Male
  Weight: 56.5 kg

DRUGS (1)
  1. REMICADE [Suspect]
     Active Substance: INFLIXIMAB
     Indication: COLITIS ULCERATIVE
     Dosage: LAST DOSE WAS ON 14/AUG/2019
     Route: 042
     Dates: start: 20190205

REACTIONS (8)
  - Tachycardia [Unknown]
  - Drug ineffective [Unknown]
  - Influenza [Unknown]
  - Product use issue [Unknown]
  - Neurodermatitis [Unknown]
  - Drug specific antibody present [Not Recovered/Not Resolved]
  - Off label use [Unknown]
  - Colitis ulcerative [Unknown]

NARRATIVE: CASE EVENT DATE: 2019
